FAERS Safety Report 6984080-5 (Version None)
Quarter: 2010Q3

REPORT INFORMATION
  Report Type: 
  Country: None (occurrence: None)
  Receive Date: 20100915
  Receipt Date: 20090514
  Transmission Date: 20110219
  Serious: No
  Sender: FDA-Public Use
  Company Number: US-WYE-H09378909

PATIENT
  Sex: Male
  Weight: 73.55 kg

DRUGS (1)
  1. PRISTIQ [Suspect]
     Indication: DEPRESSION
     Route: 048
     Dates: start: 20090511

REACTIONS (3)
  - DIZZINESS [None]
  - NIGHT SWEATS [None]
  - SOMNOLENCE [None]
